FAERS Safety Report 6149572-X (Version None)
Quarter: 2009Q2

REPORT INFORMATION
  Report Type: 
  Country: None (occurrence: None)
  Receive Date: 20090409
  Receipt Date: 20090401
  Transmission Date: 20091009
  Serious: Yes (Hospitalization, Other)
  Sender: FDA-Public Use
  Company Number: PHEH2008US09820

PATIENT
  Age: 6 Year
  Sex: Male

DRUGS (6)
  1. GLEEVEC [Suspect]
     Indication: ACUTE LYMPHOCYTIC LEUKAEMIA
     Dosage: 300 MG, QD
     Route: 048
     Dates: start: 20080101
  2. GLEEVEC [Suspect]
     Indication: CHROMOSOME ANALYSIS ABNORMAL
  3. METHOTREXATE [Concomitant]
     Indication: ACUTE LYMPHOCYTIC LEUKAEMIA
     Dosage: 17 MG, QW
     Route: 048
  4. MERCAPTOPURINE [Concomitant]
     Indication: ACUTE LYMPHOCYTIC LEUKAEMIA
     Dosage: 60 MG, QD
     Route: 048
  5. PENTAMIDINE [Concomitant]
     Indication: PROPHYLAXIS
     Dosage: 300 MG, QW4
     Route: 055
  6. ZANTAC [Concomitant]

REACTIONS (4)
  - BRAIN OEDEMA [None]
  - CENTRAL NERVOUS SYSTEM LESION [None]
  - HYDROCEPHALUS [None]
  - VENTRICULO-PERITONEAL SHUNT [None]
